FAERS Safety Report 15403293 (Version 1)
Quarter: 2018Q3

REPORT INFORMATION
  Report Type: Spontaneous
  Country: US (occurrence: US)
  Receive Date: 20180918
  Receipt Date: 20180918
  Transmission Date: 20181010
  Serious: Yes (Life-Threatening, Hospitalization, Disabling, Other)
  Sender: FDA-Public Use
  Company Number: None

PATIENT
  Age: 34 Year
  Sex: Female
  Weight: 73.35 kg

DRUGS (15)
  1. FAMOTIDINE. [Concomitant]
     Active Substance: FAMOTIDINE
  2. BACLOFEN. [Concomitant]
     Active Substance: BACLOFEN
  3. KLONOPIN [Suspect]
     Active Substance: CLONAZEPAM
     Indication: ANXIETY
     Dosage: ?          QUANTITY:45 TABLET(S);?
     Route: 048
  4. ABILIFY [Concomitant]
     Active Substance: ARIPIPRAZOLE
  5. LITHIUM CARBONATE. [Concomitant]
     Active Substance: LITHIUM CARBONATE
  6. SYMBICORT [Concomitant]
     Active Substance: BUDESONIDE\FORMOTEROL FUMARATE DIHYDRATE
  7. DIAZEPAM. [Concomitant]
     Active Substance: DIAZEPAM
  8. MILK OF MAGNESIA [Concomitant]
     Active Substance: MAGNESIUM HYDROXIDE
  9. IBUPROFEN. [Concomitant]
     Active Substance: IBUPROFEN
  10. PROAIR HFA ALBUTEROL [Concomitant]
  11. LAMICTAL [Concomitant]
     Active Substance: LAMOTRIGINE
  12. GABAPENTIN. [Concomitant]
     Active Substance: GABAPENTIN
  13. PROTONIX [Concomitant]
     Active Substance: PANTOPRAZOLE SODIUM
  14. BUSPAR [Concomitant]
     Active Substance: BUSPIRONE HYDROCHLORIDE
  15. WALGREENS BRAND WOMEN^S MULTIVITAMIN [Concomitant]

REACTIONS (2)
  - Drug withdrawal syndrome [None]
  - Wrong schedule [None]

NARRATIVE: CASE EVENT DATE: 20180330
